FAERS Safety Report 5683887-4 (Version None)
Quarter: 2008Q1

REPORT INFORMATION
  Report Type: 
  Country: None (occurrence: None)
  Receive Date: 20080327
  Receipt Date: 20080327
  Transmission Date: 20080703
  Serious: Yes (Other)
  Sender: FDA-Public Use
  Company Number: None

PATIENT
  Age: 54 Year
  Sex: Female
  Weight: 52.6173 kg

DRUGS (1)
  1. PLAQUENIL [Suspect]
     Indication: RHEUMATOID ARTHRITIS
     Dosage: 2 TABLETS ONCE A DAY ORALLY 047
     Route: 048
     Dates: start: 20080128, end: 20080223

REACTIONS (3)
  - DRUG ERUPTION [None]
  - RETINAL DISORDER [None]
  - VISUAL DISTURBANCE [None]
